FAERS Safety Report 16003578 (Version 1)
Quarter: 2019Q1

REPORT INFORMATION
  Report Type: Spontaneous
  Country: RO (occurrence: RO)
  Receive Date: 20190226
  Receipt Date: 20190226
  Transmission Date: 20190418
  Serious: Yes (Disabling, Other)
  Sender: FDA-Public Use
  Company Number: RO-ROCHE-2270041

PATIENT
  Age: 51 Year
  Sex: Female
  Weight: 78 kg

DRUGS (12)
  1. COLCHICINE. [Concomitant]
     Active Substance: COLCHICINE
     Dosage: DAILY
     Route: 065
  2. RITUXIMAB. [Suspect]
     Active Substance: RITUXIMAB
     Indication: RHEUMATOID ARTHRITIS
     Route: 042
     Dates: start: 201211
  3. SULFASALAZINA [Concomitant]
     Active Substance: SULFASALAZINE
     Indication: RHEUMATOID ARTHRITIS
     Route: 048
     Dates: start: 201802
  4. OMEZ [Concomitant]
     Active Substance: OMEPRAZOLE
     Route: 065
  5. ALPHA D3 [Concomitant]
     Active Substance: ALFACALCIDOL
     Route: 048
  6. DORETA [Concomitant]
     Active Substance: ACETAMINOPHEN\TRAMADOL HYDROCHLORIDE
     Route: 048
  7. METHOTREXATE. [Suspect]
     Active Substance: METHOTREXATE
     Indication: RHEUMATOID ARTHRITIS
     Route: 065
     Dates: start: 201211, end: 201802
  8. MOVALIS [Concomitant]
     Active Substance: MELOXICAM
     Route: 065
  9. ADALIMUMAB [Concomitant]
     Active Substance: ADALIMUMAB
     Route: 065
  10. TEVANATE [Concomitant]
     Active Substance: ALENDRONIC ACID
     Route: 048
  11. ENTECAVIR. [Concomitant]
     Active Substance: ENTECAVIR
     Route: 065
  12. LEFLUNOMIDE. [Concomitant]
     Active Substance: LEFLUNOMIDE

REACTIONS (7)
  - Hepatitis B [Unknown]
  - Anaemia [Unknown]
  - Ophthalmic herpes zoster [Recovered/Resolved with Sequelae]
  - Hypercholesterolaemia [Unknown]
  - Hepatocellular injury [Unknown]
  - Arthralgia [Unknown]
  - Joint swelling [Unknown]

NARRATIVE: CASE EVENT DATE: 201811
